FAERS Safety Report 5684088-6 (Version None)
Quarter: 2008Q1

REPORT INFORMATION
  Report Type: 
  Country: None (occurrence: None)
  Receive Date: 20080328
  Receipt Date: 20070301
  Transmission Date: 20080703
  Serious: No
  Sender: FDA-Public Use
  Company Number: US-AMGEN-US213353

PATIENT
  Sex: Female

DRUGS (13)
  1. NEULASTA [Suspect]
     Indication: CHEMOTHERAPY
     Route: 058
     Dates: start: 20070217
  2. GEODON [Concomitant]
     Route: 065
  3. LAMICTAL [Concomitant]
     Route: 065
  4. ORAL CONTRACEPTIVE NOS [Concomitant]
     Route: 048
  5. COMPAZINE [Concomitant]
     Route: 065
  6. ATIVAN [Concomitant]
     Route: 065
  7. ZOFRAN [Concomitant]
     Route: 065
  8. BENADRYL [Concomitant]
     Route: 065
  9. INTERFERON [Concomitant]
     Route: 065
  10. PROLEUKIN [Concomitant]
     Route: 065
  11. VINBLASTINE SULFATE [Concomitant]
     Route: 065
  12. CISPLATIN [Concomitant]
     Route: 065
  13. DACARBAZINE [Concomitant]
     Route: 065

REACTIONS (1)
  - WHITE BLOOD CELL COUNT ABNORMAL [None]
